FAERS Safety Report 14596538 (Version 1)
Quarter: 2018Q1

REPORT INFORMATION
  Report Type: Other
  Country: IT (occurrence: IT)
  Receive Date: 20180304
  Receipt Date: 20180304
  Transmission Date: 20180509
  Serious: Yes (Other)
  Sender: FDA-Public Use
  Company Number: IT-MACLEODS PHARMACEUTICALS US LTD-MAC2018010688

PATIENT

DRUGS (4)
  1. TOPAMAX [Suspect]
     Active Substance: TOPIRAMATE
     Indication: INTENTIONAL SELF-INJURY
     Dosage: 7 DF, TOTAL
     Route: 048
     Dates: start: 20170920, end: 20170920
  2. MELATONIN [Suspect]
     Active Substance: MELATONIN
     Indication: INTENTIONAL SELF-INJURY
     Dosage: 21 DF, TOTAL
     Route: 065
     Dates: start: 20170920, end: 20170920
  3. XANAX [Suspect]
     Active Substance: ALPRAZOLAM
     Indication: INTENTIONAL SELF-INJURY
     Dosage: 7 DF, UNK
     Route: 048
     Dates: start: 20170920, end: 20170920
  4. ARIPIPRAZOLE TABLET [Suspect]
     Active Substance: ARIPIPRAZOLE
     Indication: INTENTIONAL SELF-INJURY
     Dosage: 7 DF, UNK
     Route: 048
     Dates: start: 20170920, end: 20170920

REACTIONS (3)
  - Sopor [Unknown]
  - Drug abuse [Unknown]
  - Overdose [Unknown]

NARRATIVE: CASE EVENT DATE: 20170920
